FAERS Safety Report 25228720 (Version 1)
Quarter: 2025Q2

REPORT INFORMATION
  Report Type: Report from Study
  Country: MY (occurrence: MY)
  Receive Date: 20250423
  Receipt Date: 20250423
  Transmission Date: 20250717
  Serious: Yes (Death)
  Sender: MERCK SHARP & DOHME LLC
  Company Number: MY-009507513-2053408

PATIENT
  Age: 58 Year
  Sex: Female

DRUGS (8)
  1. KEYTRUDA [Suspect]
     Active Substance: PEMBROLIZUMAB
     Dosage: DOSE DESCRIPTION : 200 MILLIGRAM, EVERY 3 WEEKS?DAILY DOSE : 9.4 MILLIGRAM?REGIMEN DOSE : 200  MI...
     Dates: start: 20230509, end: 20230509
  2. KEYTRUDA [Suspect]
     Active Substance: PEMBROLIZUMAB
     Dosage: DOSE DESCRIPTION : 200 MILLIGRAM EVERY 3 WEEKS, CYCLE 19?DAILY DOSE : 9.4 MILLIGRAM?REGIMEN DOSE ...
     Dates: start: 20240530, end: 20240530
  3. KEYTRUDA [Suspect]
     Active Substance: PEMBROLIZUMAB
     Dosage: DOSE DESCRIPTION : 200 MILLIGRAM EVERY 3 WEEKS, CYCLE 20?DAILY DOSE : 9.4 MILLIGRAM?REGIMEN DOSE ...
     Dates: start: 20240626, end: 20240626
  4. KEYTRUDA [Suspect]
     Active Substance: PEMBROLIZUMAB
     Dosage: DOSE DESCRIPTION : 200 MILLIGRAM EVERY 3 WEEKS, CYCLE 21?DAILY DOSE : 9.4 MILLIGRAM?REGIMEN DOSE ...
     Dates: start: 20240711, end: 20240711
  5. KEYTRUDA [Suspect]
     Active Substance: PEMBROLIZUMAB
     Dosage: DOSE DESCRIPTION : 200 MILLIGRAM EVERY 3 WEEKS, CYCLE 23?DAILY DOSE : 9.4 MILLIGRAM?REGIMEN DOSE ...
     Dates: start: 20240912, end: 20240912
  6. KEYTRUDA [Suspect]
     Active Substance: PEMBROLIZUMAB
     Dosage: DOSE DESCRIPTION : 200 MILLIGRAM EVERY 3 WEEKS, CYCLE 24?DAILY DOSE : 9.4 MILLIGRAM?REGIMEN DOSE ...
     Dates: start: 20241024, end: 20241024
  7. KEYTRUDA [Suspect]
     Active Substance: PEMBROLIZUMAB
     Dosage: DOSE DESCRIPTION : 200 MILLIGRAM EVERY 3 WEEKS, CYCLE 25?DAILY DOSE : 9.4 MILLIGRAM?REGIMEN DOSE ...
     Dates: start: 20241226, end: 20241226
  8. KEYTRUDA [Suspect]
     Active Substance: PEMBROLIZUMAB
     Dosage: CYCLE 26
     Dates: start: 20250205, end: 20250205

REACTIONS (6)
  - Death [Fatal]
  - Inappropriate schedule of product administration [Unknown]
  - Inappropriate schedule of product administration [Unknown]
  - Inappropriate schedule of product administration [Unknown]
  - Inappropriate schedule of product administration [Unknown]
  - Inappropriate schedule of product administration [Unknown]

NARRATIVE: CASE EVENT DATE: 20240626
